FAERS Safety Report 8620987-0 (Version None)
Quarter: 2012Q3

REPORT INFORMATION
  Report Type: 
  Country: None (occurrence: None)
  Receive Date: 20120824
  Receipt Date: 20120813
  Transmission Date: 20120928
  Serious: Yes (Hospitalization, Disabling, Other)
  Sender: FDA-Public Use
  Company Number: US-ELI_LILLY_AND_COMPANY-US201208004363

PATIENT
  Sex: Female

DRUGS (4)
  1. HUMULIN N [Suspect]
     Indication: TYPE 2 DIABETES MELLITUS
     Dosage: UNK, UNKNOWN
     Dates: start: 20080101, end: 20120401
  2. POTASSIUM [Concomitant]
  3. HUMALOG [Suspect]
     Indication: TYPE 2 DIABETES MELLITUS
     Dosage: UNK UNK, PRN
     Dates: start: 20080101
  4. LANTUS [Concomitant]
     Dosage: UNK
     Dates: start: 20110901

REACTIONS (13)
  - ANAEMIA [None]
  - MYOCARDIAL INFARCTION [None]
  - MUSCLE SPASMS [None]
  - PARKINSON'S DISEASE [None]
  - DEPRESSION [None]
  - NEUROPATHY PERIPHERAL [None]
  - HYPERTENSION [None]
  - PNEUMONIA [None]
  - OEDEMA PERIPHERAL [None]
  - RENAL FAILURE [None]
  - DYSPNOEA [None]
  - FLUID RETENTION [None]
  - BLOOD CHOLESTEROL INCREASED [None]
